FAERS Safety Report 10204880 (Version 1)
Quarter: 2014Q2

REPORT INFORMATION
  Report Type: Spontaneous
  Country: US (occurrence: US)
  Receive Date: 20140529
  Receipt Date: 20140529
  Transmission Date: 20141212
  Serious: Yes (Other)
  Sender: FDA-Public Use
  Company Number: US-JNJFOC-20140512597

PATIENT
  Sex: 0

DRUGS (3)
  1. EVICEL [Suspect]
     Indication: ENDOCARDITIS
     Route: 061
  2. VANCOMYCIN [Suspect]
     Indication: ENDOCARDITIS
     Route: 061
  3. ALL OTHER THERAPEUTIC PRODUCTS [Concomitant]
     Indication: ENDOCARDITIS
     Route: 061

REACTIONS (2)
  - Endocarditis [Unknown]
  - Off label use [Unknown]
